FAERS Safety Report 18253929 (Version 4)
Quarter: 2020Q4

REPORT INFORMATION
  Report Type: Spontaneous
  Country: US (occurrence: US)
  Receive Date: 20200910
  Receipt Date: 20201012
  Transmission Date: 20210113
  Serious: Yes (Hospitalization)
  Sender: FDA-Public Use
  Company Number: US-PFIZER INC-2020296811

PATIENT
  Age: 84 Year
  Sex: Female

DRUGS (2)
  1. IBRANCE [Suspect]
     Active Substance: PALBOCICLIB
     Indication: BREAST CANCER FEMALE
     Dosage: 100 MG
     Dates: start: 20200720, end: 20200817
  2. IBRANCE [Suspect]
     Active Substance: PALBOCICLIB
     Dosage: UNK
     Dates: start: 20200822, end: 20200828

REACTIONS (9)
  - Renal impairment [Recovering/Resolving]
  - Neoplasm progression [Unknown]
  - Eating disorder [Unknown]
  - Fluid intake reduced [Unknown]
  - Laboratory test abnormal [Unknown]
  - Dehydration [Unknown]
  - Blood sodium decreased [Unknown]
  - Malnutrition [Unknown]
  - Hypotension [Unknown]
